FAERS Safety Report 13410415 (Version 5)
Quarter: 2024Q1

REPORT INFORMATION
  Report Type: Spontaneous
  Country: US (occurrence: US)
  Receive Date: 20170406
  Receipt Date: 20240103
  Transmission Date: 20240410
  Serious: No
  Sender: FDA-Public Use
  Company Number: US-JNJFOC-20170224886

PATIENT
  Sex: Male

DRUGS (17)
  1. RISPERDAL [Suspect]
     Active Substance: RISPERIDONE
     Indication: Bipolar disorder
     Route: 048
     Dates: start: 19970326
  2. RISPERDAL [Suspect]
     Active Substance: RISPERIDONE
     Route: 048
     Dates: start: 19970710, end: 20040401
  3. RISPERDAL [Suspect]
     Active Substance: RISPERIDONE
     Dosage: TWICE A DAY
     Route: 048
     Dates: start: 19970711
  4. RISPERDAL [Suspect]
     Active Substance: RISPERIDONE
     Dosage: THRICE A DAY
     Route: 048
     Dates: start: 19970711, end: 19980527
  5. RISPERDAL [Suspect]
     Active Substance: RISPERIDONE
     Dosage: TAPER 01 MG TWICE DAILY EVERY DAY; 0.5 MG EVERY 5 PM
     Route: 048
     Dates: start: 19980918
  6. RISPERDAL [Suspect]
     Active Substance: RISPERIDONE
     Route: 048
     Dates: start: 19981124
  7. RISPERDAL [Suspect]
     Active Substance: RISPERIDONE
     Route: 048
     Dates: start: 19990114
  8. RISPERDAL [Suspect]
     Active Substance: RISPERIDONE
     Dosage: EVERY DAY AT 8 AM AND EVERY NOON
     Route: 048
     Dates: start: 20020102, end: 20021003
  9. RISPERDAL [Suspect]
     Active Substance: RISPERIDONE
     Dosage: EVERY 8 AM AD EVERY NOON
     Route: 048
     Dates: start: 20021113
  10. RISPERDAL [Suspect]
     Active Substance: RISPERIDONE
     Dosage: 2 TWICE A DAY
     Route: 048
     Dates: start: 20030124, end: 20030221
  11. RISPERDAL [Suspect]
     Active Substance: RISPERIDONE
     Dosage: THRICE A DAY
     Route: 048
     Dates: start: 20030422, end: 20030509
  12. RISPERDAL [Suspect]
     Active Substance: RISPERIDONE
     Dosage: 1 EVERY 8 AM AND 2 EVERY 3 PM
     Route: 048
     Dates: start: 20030621
  13. RISPERDAL [Suspect]
     Active Substance: RISPERIDONE
     Dosage: TWICE A DAY
     Route: 048
     Dates: start: 20030731
  14. RISPERIDONE [Suspect]
     Active Substance: RISPERIDONE
     Indication: Bipolar disorder
     Route: 048
     Dates: start: 19980916
  15. RISPERIDONE [Suspect]
     Active Substance: RISPERIDONE
     Route: 048
     Dates: start: 19980916
  16. RISPERIDONE [Suspect]
     Active Substance: RISPERIDONE
     Route: 048
  17. RISPERIDONE [Suspect]
     Active Substance: RISPERIDONE
     Route: 048

REACTIONS (3)
  - Obesity [Not Recovered/Not Resolved]
  - Emotional disorder [Unknown]
  - Gynaecomastia [Unknown]
